FAERS Safety Report 6547798-4 (Version None)
Quarter: 2010Q1

REPORT INFORMATION
  Report Type: 
  Country: None (occurrence: None)
  Receive Date: 20100124
  Receipt Date: 20091013
  Transmission Date: 20100710
  Serious: No
  Sender: FDA-Public Use
  Company Number: US-ALEXION-A200900832

PATIENT
  Sex: Female
  Weight: 61.6 kg

DRUGS (10)
  1. SOLIRIS [Suspect]
     Indication: PAROXYSMAL NOCTURNAL HAEMOGLOBINURIA
     Dosage: 600 MG, WEEKLY FOR 4 WEEKS
     Route: 042
     Dates: start: 20070904, end: 20071001
  2. SOLIRIS [Suspect]
     Dosage: 900 MG, EVERY 2 WEEKS
     Route: 042
     Dates: start: 20071001
  3. DANAZOL [Concomitant]
     Dosage: 50 MG, QOD
     Route: 048
     Dates: start: 20080625
  4. DANAZOL [Concomitant]
     Dosage: 100 MG, QOD
     Route: 048
     Dates: start: 20080625
  5. PREDNISONE [Concomitant]
     Dosage: UNK
     Route: 048
     Dates: end: 20090601
  6. PREDNISONE [Concomitant]
     Dosage: 2.5 MG, QD
     Route: 048
     Dates: start: 20090701, end: 20090101
  7. PREDNISONE [Concomitant]
     Dosage: 5 MG, QD
     Route: 048
     Dates: start: 20090101
  8. COUMADIN [Concomitant]
     Indication: THROMBOSIS PROPHYLAXIS
     Dosage: 1 MG, UNK
     Route: 048
  9. FOLATE [Concomitant]
     Dosage: 1 MG, QD
     Route: 048
  10. IRON SULFATETHIAMIN COMPOUND TAB [Concomitant]
     Dosage: 325 MG, 1-2, QD
     Route: 048

REACTIONS (15)
  - ABDOMINAL PAIN UPPER [None]
  - ARTHRITIS [None]
  - CHOLELITHIASIS [None]
  - CONSTIPATION [None]
  - GINGIVAL PAIN [None]
  - GINGIVAL SWELLING [None]
  - HAEMATOCHEZIA [None]
  - HAPTOGLOBIN DECREASED [None]
  - HELICOBACTER GASTRITIS [None]
  - HIATUS HERNIA [None]
  - MUSCULOSKELETAL STIFFNESS [None]
  - OCULAR ICTERUS [None]
  - RECTAL HAEMORRHAGE [None]
  - TOOTHACHE [None]
  - UPPER RESPIRATORY TRACT INFECTION [None]
